FAERS Safety Report 17853353 (Version 1)
Quarter: 2020Q2

REPORT INFORMATION
  Report Type: Spontaneous
  Country: US (occurrence: US)
  Receive Date: 20200602
  Receipt Date: 20200602
  Transmission Date: 20200714
  Serious: No
  Sender: FDA-Public Use
  Company Number: US-FOUNDATIONCONSUMERHC-2020-US-001704

PATIENT
  Age: 37 Year
  Sex: Female
  Weight: 68.04 kg

DRUGS (3)
  1. PLAN B ONE-STEP [Suspect]
     Active Substance: LEVONORGESTREL
     Indication: POST COITAL CONTRACEPTION
     Dosage: 1.5MG
     Route: 048
     Dates: start: 20200123, end: 20200123
  2. CETERIZINE [Concomitant]
     Active Substance: CETIRIZINE HYDROCHLORIDE
  3. FAMOTIDINE. [Concomitant]
     Active Substance: FAMOTIDINE

REACTIONS (8)
  - Vaginal haemorrhage [Not Recovered/Not Resolved]
  - Nausea [Recovered/Resolved]
  - Breast tenderness [Not Recovered/Not Resolved]
  - Dysmenorrhoea [Not Recovered/Not Resolved]
  - Abdominal discomfort [Not Recovered/Not Resolved]
  - Insomnia [Unknown]
  - Fatigue [Not Recovered/Not Resolved]
  - Breast swelling [Not Recovered/Not Resolved]

NARRATIVE: CASE EVENT DATE: 20200123
